FAERS Safety Report 7571408-0 (Version None)
Quarter: 2011Q2

REPORT INFORMATION
  Report Type: 
  Country: None (occurrence: None)
  Receive Date: 20110624
  Receipt Date: 20110615
  Transmission Date: 20111010
  Serious: Yes (Other)
  Sender: FDA-Public Use
  Company Number: PHHY2011BR47814

PATIENT
  Sex: Male

DRUGS (9)
  1. ALENDRONATE SODIUM [Suspect]
     Indication: OSTEOPOROSIS
     Dosage: 70 MG, QW
     Route: 048
     Dates: start: 20110524
  2. SEROQUEL [Concomitant]
     Dosage: 25 MG, QD
     Route: 048
  3. HEPARIN [Concomitant]
     Dosage: 0.25 MG, QD
  4. DEPAKENE [Concomitant]
     Indication: CONVULSION
     Dosage: 50 MG, TID
     Route: 048
  5. CAPTOPRIL [Concomitant]
     Indication: HYPERTENSION
     Dosage: 50 MG, BID
     Route: 048
     Dates: start: 20101201
  6. CARBAMAZEPINE [Concomitant]
     Indication: CONVULSION
     Dosage: 400 MG, TID
     Route: 048
  7. MACRODANTINA [Concomitant]
     Indication: URINARY TRACT INFECTION
     Dosage: 100 MG, QD
     Route: 048
  8. BACLOFEN [Concomitant]
     Dosage: 10 MG, QD
     Route: 048
  9. OMEPRAZOLE [Concomitant]
     Dosage: 40 MG, QD
     Route: 048

REACTIONS (1)
  - PETIT MAL EPILEPSY [None]
